FAERS Safety Report 13181807 (Version 1)
Quarter: 2017Q1

REPORT INFORMATION
  Report Type: Spontaneous
  Country: US (occurrence: US)
  Receive Date: 20170202
  Receipt Date: 20170202
  Transmission Date: 20170428
  Serious: Yes (Hospitalization)
  Sender: FDA-Public Use
  Company Number: None

PATIENT
  Age: 55 Year
  Sex: Male
  Weight: 66.8 kg

DRUGS (1)
  1. LISINOPRIL. [Suspect]
     Active Substance: LISINOPRIL
     Indication: HYPERTENSION
     Route: 048
     Dates: start: 20151211, end: 20161110

REACTIONS (5)
  - Laryngeal oedema [None]
  - Angioedema [None]
  - Anaphylactic reaction [None]
  - Asthenia [None]
  - Cough [None]

NARRATIVE: CASE EVENT DATE: 20161110
